FAERS Safety Report 8469594-3 (Version None)
Quarter: 2012Q2

REPORT INFORMATION
  Report Type: 
  Country: None (occurrence: None)
  Receive Date: 20120626
  Receipt Date: 20120614
  Transmission Date: 20120825
  Serious: Yes (Disabling)
  Sender: FDA-Public Use
  Company Number: US-BAYER-2012-059874

PATIENT
  Age: 51 Year
  Sex: Male
  Weight: 109 kg

DRUGS (4)
  1. FLUOXETINE HCL [Concomitant]
  2. LIDOCAINE HYDROCHLORIDE [Suspect]
     Indication: SKIN WOUND
     Dosage: UNK
     Route: 061
     Dates: start: 20111101
  3. DIAZEPAN [Concomitant]
  4. ABILIFY [Concomitant]

REACTIONS (10)
  - NECK PAIN [None]
  - MUSCULOSKELETAL STIFFNESS [None]
  - BACK PAIN [None]
  - SKIN DISCOLOURATION [None]
  - SCAB [None]
  - OEDEMA PERIPHERAL [None]
  - SKIN INDURATION [None]
  - SKIN EXFOLIATION [None]
  - DERMATITIS CONTACT [None]
  - LOCAL SWELLING [None]
